FAERS Safety Report 13621638 (Version 2)
Quarter: 2017Q3

REPORT INFORMATION
  Report Type: Spontaneous
  Country: GB (occurrence: GB)
  Receive Date: 20170607
  Receipt Date: 20170725
  Transmission Date: 20171127
  Serious: Yes (Other)
  Sender: FDA-Public Use
  Company Number: GB-GLENMARK PHARMACEUTICALS-2017GMK027730

PATIENT

DRUGS (2)
  1. GLEPARK 0.88 MG TABLETS [Suspect]
     Active Substance: PRAMIPEXOLE DIHYDROCHLORIDE
     Indication: RESTLESS LEGS SYNDROME
     Dosage: 1 DF, QD
     Route: 048
     Dates: start: 20130701
  2. GLEPARK 0.88 MG TABLETS [Suspect]
     Active Substance: PRAMIPEXOLE DIHYDROCHLORIDE
     Dosage: 2 DF, QD
     Route: 048
     Dates: start: 20130919

REACTIONS (6)
  - Gambling disorder [Recovered/Resolved]
  - Economic problem [Unknown]
  - Depressed mood [Unknown]
  - Dependence [Unknown]
  - Suicidal ideation [Unknown]
  - Impaired quality of life [Unknown]

NARRATIVE: CASE EVENT DATE: 20150512
